FAERS Safety Report 8990211 (Version 4)
Quarter: 2013Q4

REPORT INFORMATION
  Report Type: Spontaneous
  Country: US (occurrence: US)
  Receive Date: 20121228
  Receipt Date: 20131104
  Transmission Date: 20140711
  Serious: Yes (Other)
  Sender: FDA-Public Use
  Company Number: US-PFIZER INC-2012331030

PATIENT
  Age: 81 Year
  Sex: Female
  Weight: 63.49 kg

DRUGS (4)
  1. LYRICA [Suspect]
     Dosage: UNK, 3X/DAY
     Route: 048
     Dates: start: 201212, end: 201212
  2. GLUCOPHAGE [Concomitant]
     Indication: DIABETES MELLITUS
     Dosage: UNK, 2X/DAY
  3. LISINOPRIL [Concomitant]
     Indication: BLOOD CHOLESTEROL ABNORMAL
     Dosage: 20 MG, DAILY
  4. GLUCOTROL [Concomitant]
     Indication: DIABETES MELLITUS
     Dosage: UNK

REACTIONS (17)
  - Swelling face [Not Recovered/Not Resolved]
  - Nasal oedema [Not Recovered/Not Resolved]
  - Oedema peripheral [Not Recovered/Not Resolved]
  - Skin disorder [Not Recovered/Not Resolved]
  - Skin burning sensation [Not Recovered/Not Resolved]
  - Skin discolouration [Not Recovered/Not Resolved]
  - Cough [Not Recovered/Not Resolved]
  - Fatigue [Not Recovered/Not Resolved]
  - Malaise [Unknown]
  - Feeling hot [Unknown]
  - Alopecia [Unknown]
  - Joint swelling [Unknown]
  - Rash macular [Unknown]
  - Laboratory test abnormal [Unknown]
  - Dry skin [Unknown]
  - Skin wrinkling [Unknown]
  - Weight decreased [Unknown]
